FAERS Safety Report 9334440 (Version 2)
Quarter: 2013Q4

REPORT INFORMATION
  Report Type: Spontaneous
  Country: US (occurrence: US)
  Receive Date: 20130606
  Receipt Date: 20131008
  Transmission Date: 20140711
  Serious: Yes (Other)
  Sender: FDA-Public Use
  Company Number: US-AMGEN-USASP2013025584

PATIENT
  Age: 68 Year
  Sex: Male
  Weight: 86.08 kg

DRUGS (4)
  1. PROLIA [Suspect]
     Indication: OSTEOPOROSIS
     Dosage: 60 MG, Q6MO
     Route: 058
     Dates: start: 20120928
  2. NADOLOL [Concomitant]
     Dosage: 20 MG, QD
     Route: 048
     Dates: start: 20130214
  3. PANTOPRAZOLE [Concomitant]
     Dosage: 40 MG, UNK
     Route: 048
  4. DIURETICS [Concomitant]

REACTIONS (14)
  - Pancreatitis [Unknown]
  - Abdominal pain [Recovered/Resolved]
  - Oedema [Not Recovered/Not Resolved]
  - Haemorrhoids [Unknown]
  - Hiatus hernia [Unknown]
  - Immunology test abnormal [Unknown]
  - Cholelithiasis [Unknown]
  - Dyspnoea [Unknown]
  - Weight decreased [Unknown]
  - Decreased appetite [Unknown]
  - Nausea [Recovered/Resolved]
  - Productive cough [Unknown]
  - Confusional state [Unknown]
  - Lethargy [Unknown]
